FAERS Safety Report 10348774 (Version 1)
Quarter: 2014Q3

REPORT INFORMATION
  Report Type: Spontaneous
  Country: CO (occurrence: None)
  Receive Date: 20140725
  Receipt Date: 20140725
  Transmission Date: 20150326
  Serious: Yes (Other)
  Sender: FDA-Public Use
  Company Number: 2014-20034

PATIENT
  Age: 76 Year
  Sex: Female

DRUGS (4)
  1. LOVASTATIN. [Concomitant]
     Active Substance: LOVASTATIN
  2. LOSARTAN [Concomitant]
     Active Substance: LOSARTAN
  3. EYLEA [Suspect]
     Active Substance: AFLIBERCEPT
     Indication: AGE-RELATED MACULAR DEGENERATION
     Dosage: ON LEFT EYE
     Route: 031
     Dates: start: 20130606, end: 20130606
  4. LEVOTHYROXINE [Concomitant]
     Active Substance: LEVOTHYROXINE

REACTIONS (3)
  - Vision blurred [None]
  - Inappropriate schedule of drug administration [None]
  - Vitreous haemorrhage [None]

NARRATIVE: CASE EVENT DATE: 20140601
